FAERS Safety Report 6383320-3 (Version None)
Quarter: 2009Q4

REPORT INFORMATION
  Report Type: 
  Country: None (occurrence: None)
  Receive Date: 20091001
  Receipt Date: 20090921
  Transmission Date: 20100525
  Serious: Yes (Hospitalization, Other)
  Sender: FDA-Public Use
  Company Number: US-BIOGENIDEC-2009BI028536

PATIENT
  Age: 46 Year
  Sex: Female
  Weight: 85 kg

DRUGS (9)
  1. AVONEX [Suspect]
     Indication: MULTIPLE SCLEROSIS
     Route: 030
     Dates: start: 20010222, end: 20090101
  2. EFFEXOR [Concomitant]
     Indication: DRUG USE FOR UNKNOWN INDICATION
     Route: 048
  3. VITAMIN D [Concomitant]
     Indication: DRUG USE FOR UNKNOWN INDICATION
  4. VITAMIN E [Concomitant]
     Indication: DRUG USE FOR UNKNOWN INDICATION
  5. MULTI-VITAMIN [Concomitant]
     Indication: DRUG USE FOR UNKNOWN INDICATION
  6. ALEVE [Concomitant]
     Indication: PROPHYLAXIS
  7. MOTRIN [Concomitant]
     Indication: DRUG USE FOR UNKNOWN INDICATION
  8. SAFFLOWER OIL [Concomitant]
     Indication: DRUG USE FOR UNKNOWN INDICATION
  9. ATIVAN [Concomitant]
     Indication: PROPHYLAXIS OF NAUSEA AND VOMITING
     Route: 048

REACTIONS (15)
  - BONE MARROW FAILURE [None]
  - BREAST TENDERNESS [None]
  - CHORIOCARCINOMA [None]
  - CONSTIPATION [None]
  - COUGH [None]
  - DEPRESSION [None]
  - DERMATITIS CONTACT [None]
  - DYSPNOEA EXERTIONAL [None]
  - FATIGUE [None]
  - METASTATIC NEOPLASM [None]
  - MOUTH ULCERATION [None]
  - MULTIPLE SCLEROSIS RELAPSE [None]
  - PNEUMOTHORAX [None]
  - PROCEDURAL PAIN [None]
  - STRESS [None]
